FAERS Safety Report 4678017-1 (Version None)
Quarter: 2005Q2

REPORT INFORMATION
  Report Type: 
  Country: None (occurrence: None)
  Receive Date: 20050531
  Receipt Date: 20050522
  Transmission Date: 20051028
  Serious: Yes (Hospitalization)
  Sender: FDA-Public Use
  Company Number: IL-ABBOTT-05P-082-0301308-00

PATIENT
  Age: 60 Year
  Sex: Male
  Weight: 50 kg

DRUGS (1)
  1. KALETRA [Suspect]
     Indication: HIV INFECTION
     Route: 048
     Dates: start: 20050518

REACTIONS (5)
  - CACHEXIA [None]
  - CD4 LYMPHOCYTES DECREASED [None]
  - METABOLIC DISORDER [None]
  - ORAL CANDIDIASIS [None]
  - VIRAL LOAD INCREASED [None]
